FAERS Safety Report 10925789 (Version 3)
Quarter: 2015Q2

REPORT INFORMATION
  Report Type: Spontaneous
  Country: DK (occurrence: None)
  Receive Date: 20150313
  Receipt Date: 20150402
  Transmission Date: 20150821
  Serious: Yes (Death, Life-Threatening, Hospitalization)
  Sender: FDA-Public Use
  Company Number: FK201501175

PATIENT
  Age: 64 Year
  Sex: Male
  Weight: 73 kg

DRUGS (6)
  1. PREDNISOLON (PREDNISOLONE) [Concomitant]
  2. OXALIPLATIN 5MG/ML CONCENTRATE FOR SOLUTION FOR INFUSION (OXALIPLATIN) (OXALIPLATIN) [Suspect]
     Active Substance: OXALIPLATIN
     Indication: COLON CANCER
     Route: 042
     Dates: start: 20141227, end: 20150122
  3. CAPECITABIN [Suspect]
     Active Substance: CAPECITABINE
     Indication: COLON CANCER
     Route: 048
     Dates: start: 20141227, end: 20150205
  4. LOSARTAN/HYDROCHLORTHIAZID ^BLUEFISH^ (LOSARTANKALIUM, HYDROCHLORTHIAZID) (LOSARTANKALIUM, HYDROCHLORTHIAZID) [Concomitant]
  5. MOTILIUM (DOMPERIDONE) [Concomitant]
  6. ZOFRAN (ONDANSETRONHYDROCHLORIDDIHYDRAT, ONDANSETRON) [Concomitant]

REACTIONS (13)
  - Nausea [None]
  - Pyrexia [None]
  - Bacterial test positive [None]
  - Diarrhoea [None]
  - Intestinal ischaemia [None]
  - Gastrointestinal necrosis [None]
  - Confusional state [None]
  - Blood gases abnormal [None]
  - Malaise [None]
  - Dyspnoea [None]
  - Condition aggravated [None]
  - Syncope [None]
  - Dizziness [None]

NARRATIVE: CASE EVENT DATE: 201502
